FAERS Safety Report 15449040 (Version 1)
Quarter: 2018Q3

REPORT INFORMATION
  Report Type: Spontaneous
  Country: US (occurrence: US)
  Receive Date: 20180930
  Receipt Date: 20180930
  Transmission Date: 20181010
  Serious: Yes (Other)
  Sender: FDA-Public Use
  Company Number: US-NOVOPROD-622893

PATIENT
  Age: 68 Year
  Sex: Female

DRUGS (3)
  1. TRESIBA [Suspect]
     Active Substance: INSULIN DEGLUDEC
     Indication: TYPE 2 DIABETES MELLITUS
     Dosage: 10 U, QD
     Route: 058
     Dates: start: 20180813, end: 2018
  2. TRESIBA [Suspect]
     Active Substance: INSULIN DEGLUDEC
     Dosage: 30 U, QW
     Route: 058
     Dates: start: 20180917
  3. TRESIBA [Suspect]
     Active Substance: INSULIN DEGLUDEC
     Dosage: 15 U, QD
     Route: 058
     Dates: start: 2018, end: 2018

REACTIONS (8)
  - Cerebrovascular accident [Unknown]
  - Blood glucose increased [Recovering/Resolving]
  - Off label use [Unknown]
  - Hypoaesthesia [Recovering/Resolving]
  - Stress [Unknown]
  - Meniere^s disease [Recovering/Resolving]
  - Neuropathy peripheral [Recovering/Resolving]
  - Diabetes mellitus inadequate control [Unknown]

NARRATIVE: CASE EVENT DATE: 2018
